FAERS Safety Report 24331586 (Version 3)
Quarter: 2024Q4

REPORT INFORMATION
  Report Type: Report from Study
  Country: JP (occurrence: JP)
  Receive Date: 20240918
  Receipt Date: 20241114
  Transmission Date: 20250115
  Serious: Yes (Other)
  Sender: INSMED
  Company Number: JP-INSMED-2024-00946-JPAA

PATIENT
  Sex: Female
  Weight: 53.4 kg

DRUGS (4)
  1. ARIKAYCE [Suspect]
     Active Substance: AMIKACIN
     Indication: Mycobacterium avium complex infection
     Dosage: 590 MILLIGRAM, QD
     Route: 055
     Dates: start: 20240229, end: 20240323
  2. CLARITHROMYCIN [Concomitant]
     Active Substance: CLARITHROMYCIN
     Indication: Mycobacterium avium complex infection
     Dosage: 800 MILLIGRAM/DAY
     Route: 065
     Dates: start: 20170620
  3. RIFAMPIN [Concomitant]
     Active Substance: RIFAMPIN
     Indication: Mycobacterium avium complex infection
     Dosage: 450 MILLIGRAM/DAY
     Route: 065
     Dates: start: 20170620
  4. ETHAMBUTOL HYDROCHLORIDE [Concomitant]
     Active Substance: ETHAMBUTOL HYDROCHLORIDE
     Indication: Mycobacterium avium complex infection
     Dosage: 750 MILLIGRAM/DAY
     Dates: start: 20170620

REACTIONS (5)
  - Pulmonary toxicity [Recovering/Resolving]
  - Cough [Unknown]
  - Dysphonia [Unknown]
  - Wrong technique in product usage process [Unknown]
  - Drug ineffective [Unknown]

NARRATIVE: CASE EVENT DATE: 20240101
